FAERS Safety Report 9462409 (Version 3)
Quarter: 2013Q3

REPORT INFORMATION
  Report Type: Report from Study
  Country: DE (occurrence: DE)
  Receive Date: 20130816
  Receipt Date: 20130923
  Transmission Date: 20140515
  Serious: Yes (Hospitalization)
  Sender: FDA-Public Use
  Company Number: PHHO2013DE009961

PATIENT
  Sex: 0

DRUGS (13)
  1. BLINDED AFINITOR [Suspect]
     Indication: GASTRIC CANCER
     Dosage: CODE NOT BROKEN
     Route: 048
     Dates: start: 20130616, end: 20130729
  2. BLINDED NO TREATMENT RECEIVED [Suspect]
     Indication: GASTRIC CANCER
     Dosage: CODE NOT BROKEN
     Route: 048
     Dates: start: 20130616, end: 20130729
  3. BLINDED PLACEBO [Suspect]
     Indication: GASTRIC CANCER
     Dosage: CODE NOT BROKEN
     Route: 048
     Dates: start: 20130616, end: 20130729
  4. IBUPROFENO [Suspect]
  5. COMPARATOR PACLITAXEL [Suspect]
     Indication: GASTRIC CANCER
     Dosage: 80MG/40MG
     Dates: start: 20130616, end: 20130725
  6. NOVAMINOSULFON [Suspect]
  7. CLEXANE [Concomitant]
     Indication: PROPHYLAXIS
     Dosage: 40 MG, UNK
     Dates: start: 20130728, end: 20130806
  8. ASS [Concomitant]
     Indication: PROPHYLAXIS
     Dosage: 100 MG, UNK
  9. FUROSEMIDE [Concomitant]
     Indication: POLYURIA
     Dosage: 40 MG, UNK
  10. CONCOR [Concomitant]
     Indication: HYPERTONIA
     Dosage: 2.5 MG, UNK
  11. PANTOZOL [Concomitant]
     Indication: PROPHYLAXIS
     Dosage: 40 MG, UNK
  12. KALIUM [Concomitant]
     Indication: HYPOKALAEMIA
     Dosage: 2/DAY
     Dates: start: 20130804, end: 20130806
  13. PRAVASTATIN [Concomitant]
     Indication: HYPERCHOLESTEROLAEMIA
     Dosage: 20 MG, UNK

REACTIONS (2)
  - Hepatic function abnormal [Recovered/Resolved]
  - Cholangitis [Recovered/Resolved]
